FAERS Safety Report 23292558 (Version 1)
Quarter: 2023Q4

REPORT INFORMATION
  Report Type: Spontaneous
  Country: GB (occurrence: GB)
  Receive Date: 20231213
  Receipt Date: 20231213
  Transmission Date: 20240110
  Serious: Yes (Other)
  Sender: FDA-Public Use
  Company Number: GB-009507513-2312GBR002761

PATIENT
  Age: 67 Year
  Sex: Male

DRUGS (3)
  1. PEMBROLIZUMAB [Suspect]
     Active Substance: PEMBROLIZUMAB
     Indication: Progressive multifocal leukoencephalopathy
     Dosage: FIRST DOSE, 2 MG/KG
  2. PEMBROLIZUMAB [Suspect]
     Active Substance: PEMBROLIZUMAB
     Indication: Idiopathic CD4 lymphocytopenia
     Dosage: SECOND DOSE AFTER 4 WEEKS, 2 MG/KG
  3. PEMBROLIZUMAB [Suspect]
     Active Substance: PEMBROLIZUMAB
     Dosage: THIRD DOSE AFTER 5 MONTH AFTER THE SECOND DOSE, 2 MG/KG

REACTIONS (4)
  - Immune reconstitution inflammatory syndrome [Unknown]
  - Immune-mediated arthritis [Recovered/Resolved]
  - Immune-mediated enterocolitis [Unknown]
  - Off label use [Unknown]
